FAERS Safety Report 8951689 (Version 1)
Quarter: 2012Q4

REPORT INFORMATION
  Report Type: 
  Country: CH (occurrence: CH)
  Receive Date: 20121204
  Receipt Date: 20121204
  Transmission Date: 20130627
  Serious: Yes (Hospitalization, Other)
  Sender: FDA-Public Use
  Company Number: PHHY2012CH110318

PATIENT
  Age: 77 Year
  Sex: Female
  Weight: 60 kg

DRUGS (8)
  1. AMLODIPINE [Suspect]
     Indication: ESSENTIAL HYPERTENSION
     Dosage: 5 mg, QD
     Dates: start: 20121019, end: 20121109
  2. AMOXICILLIN SANDOZ [Suspect]
     Indication: BACTERIAL INFECTION
     Dosage: 2 g, QD
     Route: 048
     Dates: start: 20121019, end: 20121026
  3. SORTIS [Interacting]
     Indication: ACUTE MYOCARDIAL INFARCTION
     Dosage: 20 mg, QD
     Route: 048
     Dates: start: 20100210, end: 20121110
  4. KLACID [Interacting]
     Indication: BACTERIAL INFECTION
     Dosage: 1 g, QD
     Dates: start: 20121019, end: 20121026
  5. COAPROVEL [Suspect]
     Indication: ESSENTIAL HYPERTENSION
     Dosage: 1 DF, UNK
     Dates: start: 201002, end: 20121110
  6. ASPIRIN CARDIO [Concomitant]
     Dosage: 100 mg, QD
     Route: 048
     Dates: start: 201002
  7. CONCOR [Interacting]
     Dosage: 2.5 mg, QD
     Route: 048
     Dates: start: 2010
  8. PANTOZOL [Concomitant]
     Dosage: 40 mg, QD
     Route: 048
     Dates: start: 201210

REACTIONS (5)
  - Rhabdomyolysis [Recovering/Resolving]
  - Renal failure acute [Recovering/Resolving]
  - Syncope [Recovered/Resolved]
  - Asthenia [Unknown]
  - Drug interaction [Unknown]
